FAERS Safety Report 4726933-4 (Version None)
Quarter: 2005Q3

REPORT INFORMATION
  Report Type: 
  Country: None (occurrence: None)
  Receive Date: 20050725
  Receipt Date: 20050725
  Transmission Date: 20060218
  Serious: Yes (Hospitalization)
  Sender: FDA-Public Use
  Company Number: None

PATIENT
  Sex: Male
  Weight: 70.3075 kg

DRUGS (11)
  1. ENBREL [Suspect]
     Indication: RHEUMATOID ARTHRITIS
     Dosage: 25 MG   TWICE A WEEK   SUBCUTANEO
     Route: 058
     Dates: start: 20040914, end: 20050609
  2. METHOTREXATE [Concomitant]
  3. HYDROXYCHLOROQUINE SULFATE [Concomitant]
  4. SULFASALAZINE [Concomitant]
  5. ISONIAZID [Concomitant]
  6. PREVACID [Concomitant]
  7. CIALIS [Concomitant]
  8. VITAMIN B6 [Concomitant]
  9. GLUCOSAMINE SULFATE [Concomitant]
  10. FOLIC ACID [Concomitant]
  11. MULTIVITAMIN [Concomitant]

REACTIONS (3)
  - ASTHENIA [None]
  - CEREBROVASCULAR ACCIDENT [None]
  - FACIAL PALSY [None]
